FAERS Safety Report 26000812 (Version 1)
Quarter: 2025Q4

REPORT INFORMATION
  Report Type: Spontaneous
  Country: PR (occurrence: PR)
  Receive Date: 20251105
  Receipt Date: 20251105
  Transmission Date: 20260117
  Serious: No
  Sender: ANI
  Company Number: PR-ANIPHARMA-2025-PR-000081

PATIENT
  Age: 43 Year
  Sex: Female
  Weight: 56.25 kg

DRUGS (8)
  1. CORTICOTROPIN [Suspect]
     Active Substance: CORTICOTROPIN
     Indication: Multiple sclerosis
     Dosage: INJECT 80 UNITS SQ, 1 TIME DAILY X 10 DAYS
     Route: 058
     Dates: start: 20250905
  2. LOSARTAN [Concomitant]
     Active Substance: LOSARTAN
  3. Ampira [Concomitant]
  4. HYDROCHLOROTHIAZIDE [Concomitant]
     Active Substance: HYDROCHLOROTHIAZIDE
  5. ^Benteine^ [Concomitant]
  6. CLONAZEPAM [Concomitant]
     Active Substance: CLONAZEPAM
  7. SYNTHROID [Concomitant]
     Active Substance: LEVOTHYROXINE SODIUM
     Dosage: 75MCG AND 88MCG SPLIT DOSE
  8. BACLOFEN [Concomitant]
     Active Substance: BACLOFEN

REACTIONS (2)
  - Injection site pain [Recovered/Resolved]
  - Contraindicated product administered [Not Recovered/Not Resolved]

NARRATIVE: CASE EVENT DATE: 20250905
